FAERS Safety Report 9364593 (Version 3)
Quarter: 2013Q4

REPORT INFORMATION
  Report Type: Spontaneous
  Country: DE (occurrence: None)
  Receive Date: 20130619
  Receipt Date: 20131220
  Transmission Date: 20140711
  Serious: Yes (Life-Threatening, Hospitalization)
  Sender: FDA-Public Use
  Company Number: VAL_02585_2013

PATIENT
  Age: 68 Year
  Sex: Male
  Weight: 114.9 kg

DRUGS (7)
  1. METOPROLOL TARTRATE [Suspect]
     Indication: HYPERTENSION
     Route: 048
     Dates: start: 201207, end: 20130604
  2. ACZ885 [Suspect]
     Indication: CARDIAC FAILURE
     Dosage: DF
     Route: 058
     Dates: start: 20121121
  3. RAMIPRIL [Concomitant]
  4. ASS [Concomitant]
  5. TORASEMID [Concomitant]
  6. DOXAZOSIN [Concomitant]
  7. TAMSULOSIN [Concomitant]

REACTIONS (5)
  - Cardiac failure [None]
  - Bradycardia [None]
  - Respiratory failure [None]
  - Concomitant disease progression [None]
  - Atrioventricular block complete [None]
